FAERS Safety Report 8778161 (Version 1)
Quarter: 2012Q4

REPORT INFORMATION
  Report Type: Report from Study
  Country: DE (occurrence: DE)
  Receive Date: 20120912
  Receipt Date: 20120912
  Transmission Date: 20130627
  Serious: Yes (Hospitalization, Other)
  Sender: FDA-Public Use
  Company Number: DE-BAXTER-2012BAX016077

PATIENT
  Age: 73 Year
  Sex: Female
  Weight: 66 kg

DRUGS (7)
  1. ENDOXAN 1G [Suspect]
     Indication: MALIGNANT BREAST NEOPLASM
     Dosage: 600 mcg/m2
     Route: 042
     Dates: start: 20120716
  2. ENDOXAN 1G [Suspect]
     Route: 042
     Dates: start: 20120810
  3. EPIRUBICIN [Suspect]
     Indication: MALIGNANT BREAST NEOPLASM
     Dosage: 90 mcg/m2
     Route: 042
     Dates: start: 20120716
  4. EPIRUBICIN [Suspect]
     Route: 042
     Dates: start: 20120810
  5. ENALAPRIL [Concomitant]
     Indication: DRUG USE FOR UNKNOWN INDICATION
     Route: 065
  6. SIMVASTATIN [Concomitant]
     Indication: DRUG USE FOR UNKNOWN INDICATION
     Route: 065
  7. RANITIDINE [Concomitant]
     Indication: DRUG USE FOR UNKNOWN INDICATION
     Route: 065
     Dates: start: 20120817

REACTIONS (2)
  - Leukopenia [Recovering/Resolving]
  - Faecaloma [Recovered/Resolved]
